FAERS Safety Report 6322000-7 (Version None)
Quarter: 2009Q3

REPORT INFORMATION
  Report Type: 
  Country: None (occurrence: None)
  Receive Date: 20090812
  Receipt Date: 20090417
  Transmission Date: 20100115
  Serious: No
  Sender: FDA-Public Use
  Company Number: WAES 0904USA02962

PATIENT
  Age: 20 Year
  Sex: Male

DRUGS (2)
  1. ISENTRESS [Suspect]
     Dosage: 400 MG/BID/PO
     Route: 048
     Dates: start: 20090302
  2. TRUVADA [Concomitant]

REACTIONS (1)
  - ALOPECIA [None]
